FAERS Safety Report 17219641 (Version 1)
Quarter: 2019Q4

REPORT INFORMATION
  Report Type: Spontaneous
  Country: US (occurrence: US)
  Receive Date: 20191209
  Receipt Date: 20191209
  Transmission Date: 20200122
  Serious: Yes (Hospitalization)
  Sender: FDA-Public Use
  Company Number: None

PATIENT
  Age: 69 Year
  Sex: Male
  Weight: 75 kg

DRUGS (1)
  1. WARFARIN (WARFARIN NA (EXELAN) 5MG TAB) [Suspect]
     Active Substance: WARFARIN SODIUM
     Indication: ATRIAL FIBRILLATION
     Route: 048
     Dates: start: 20071004, end: 20190606

REACTIONS (6)
  - Epistaxis [None]
  - Sinusitis [None]
  - Haemorrhage [None]
  - Eye haemorrhage [None]
  - Anticoagulation drug level below therapeutic [None]
  - Ear haemorrhage [None]

NARRATIVE: CASE EVENT DATE: 20190329
